FAERS Safety Report 8475834-7 (Version None)
Quarter: 2012Q2

REPORT INFORMATION
  Report Type: 
  Country: None (occurrence: None)
  Receive Date: 20120621
  Receipt Date: 20120605
  Transmission Date: 20120825
  Serious: Yes (Death, Hospitalization)
  Sender: FDA-Public Use
  Company Number: DSA_57793_2012

PATIENT
  Sex: Male

DRUGS (14)
  1. MYDRIATICS AND CYCLOPLEGICS [Concomitant]
  2. WARFARIN SODIUM [Concomitant]
  3. TENORMIN [Concomitant]
  4. MAGNESIUM OXIDE [Concomitant]
  5. CANDESARTAN CILEXETIL [Concomitant]
  6. CEROCRAL [Concomitant]
  7. MUCOSTA [Concomitant]
  8. ALLOPURINOL [Concomitant]
  9. VIGAMOX [Concomitant]
  10. ANTISEPTICS [Concomitant]
  11. WARFARIN POTASSIUM [Concomitant]
  12. OMEPRAZOLE [Concomitant]
  13. ANESTHETICS, LOCAL [Concomitant]
  14. PEGAPTANIB SODIUM (PEGAPTANIB SODIUM) [Suspect]
     Indication: AGE-RELATED MACULAR DEGENERATION
     Dosage: (0.3 MG/TIME, RIGHT EYE INTRAOCULAR)
     Route: 031
     Dates: start: 20091023, end: 20101227

REACTIONS (3)
  - FALL [None]
  - CONTUSION [None]
  - LOSS OF CONSCIOUSNESS [None]
